FAERS Safety Report 6955733-X (Version None)
Quarter: 2010Q3

REPORT INFORMATION
  Report Type: 
  Country: None (occurrence: None)
  Receive Date: 20100826
  Receipt Date: 20100826
  Transmission Date: 20110219
  Serious: No
  Sender: FDA-Public Use
  Company Number: None

PATIENT
  Sex: Female

DRUGS (1)
  1. EVAMIST [Suspect]
     Indication: MENOPAUSAL SYMPTOMS
     Dosage: 1-2 SPRAYS ONCE A DAY
     Dates: start: 20091101, end: 20100801

REACTIONS (1)
  - ACCIDENTAL EXPOSURE [None]
